FAERS Safety Report 5409617-9 (Version None)
Quarter: 2007Q3

REPORT INFORMATION
  Report Type: 
  Country: None (occurrence: None)
  Receive Date: 20070807
  Receipt Date: 20070807
  Transmission Date: 20080115
  Serious: Yes (Other)
  Sender: FDA-Public Use
  Company Number: None

PATIENT
  Age: 42 Year
  Sex: Male
  Weight: 79.3795 kg

DRUGS (1)
  1. ATHLETES FOOT SPRAY 1% ECKERD [Suspect]
     Indication: TINEA CRURIS
     Dosage: TWICE TOP
     Route: 061
     Dates: start: 20070528, end: 20070529

REACTIONS (5)
  - CONDITION AGGRAVATED [None]
  - DERMATITIS CONTACT [None]
  - DRUG INEFFECTIVE [None]
  - SCROTAL ERYTHEMA [None]
  - SKIN IRRITATION [None]
